FAERS Safety Report 9397838 (Version 1)
Quarter: 2013Q3

REPORT INFORMATION
  Report Type: Spontaneous
  Country: US (occurrence: None)
  Receive Date: 20130711
  Receipt Date: 20130711
  Transmission Date: 20140515
  Serious: No
  Sender: FDA-Public Use
  Company Number: None

PATIENT
  Sex: 0

DRUGS (2)
  1. CLINDAMYCIN [Suspect]
     Dates: start: 201305, end: 201305
  2. CLINDAMYCIN [Suspect]
     Dates: start: 201305, end: 201305

REACTIONS (3)
  - Diarrhoea [None]
  - Flatulence [None]
  - Constipation [None]
